FAERS Safety Report 13742555 (Version 1)
Quarter: 2017Q3

REPORT INFORMATION
  Report Type: Spontaneous
  Country: US (occurrence: US)
  Receive Date: 20170711
  Receipt Date: 20170711
  Transmission Date: 20171127
  Serious: Yes (Hospitalization)
  Sender: FDA-Public Use
  Company Number: US-SAOL THERAPEUTICS-2016SAO00987

PATIENT
  Sex: Male
  Weight: 91 kg

DRUGS (15)
  1. LIORESAL [Suspect]
     Active Substance: BACLOFEN
     Indication: MULTIPLE SCLEROSIS
     Dosage: 91.14 ?G, \DAY
     Route: 037
     Dates: start: 20160324
  2. FISH OIL [Suspect]
     Active Substance: FISH OIL
  3. TRAMADOL. [Suspect]
     Active Substance: TRAMADOL
     Dosage: 50 MG, \DAY
  4. TAMSULOSIN [Suspect]
     Active Substance: TAMSULOSIN
  5. ASPIRIN. [Suspect]
     Active Substance: ASPIRIN
  6. CRANBERRY. [Suspect]
     Active Substance: CRANBERRY
  7. HYDROCHLOROTHIAZIDE. [Suspect]
     Active Substance: HYDROCHLOROTHIAZIDE
     Dosage: 12.5 MG, \DAY
     Route: 048
  8. THERACAL D2000 [Suspect]
     Active Substance: MINERALS\VITAMINS
  9. LIORESAL [Suspect]
     Active Substance: BACLOFEN
     Indication: MUSCLE SPASTICITY
  10. COMPOUNDED BACLOFEN [Suspect]
     Active Substance: BACLOFEN
     Route: 037
  11. BICALUTAMIDE. [Suspect]
     Active Substance: BICALUTAMIDE
  12. LISINOPRIL. [Suspect]
     Active Substance: LISINOPRIL
     Dosage: 10 MG, \DAY
     Route: 048
  13. PROBIOTICS [Suspect]
     Active Substance: PROBIOTICS NOS
  14. MULTI VITAMIN [Suspect]
     Active Substance: VITAMINS
  15. BACTRIM [Suspect]
     Active Substance: SULFAMETHOXAZOLE\TRIMETHOPRIM

REACTIONS (7)
  - Overdose [Recovered/Resolved]
  - Retching [Unknown]
  - Urinary incontinence [Unknown]
  - Nausea [Unknown]
  - Somnolence [Recovered/Resolved]
  - Performance status decreased [Unknown]
  - Malaise [Unknown]
